FAERS Safety Report 10184625 (Version 2)
Quarter: 2014Q2

REPORT INFORMATION
  Report Type: Spontaneous
  Country: IT (occurrence: None)
  Receive Date: 20140519
  Receipt Date: 20140604
  Transmission Date: 20141212
  Serious: Yes (Death, Hospitalization)
  Sender: FDA-Public Use
  Company Number: 2014STPI000210

PATIENT
  Age: 65 Year
  Sex: Female

DRUGS (4)
  1. MATULANE [Suspect]
     Indication: OLIGODENDROGLIOMA
     Route: 048
     Dates: start: 20090210, end: 20090212
  2. BELUSTINE [Suspect]
     Indication: OLIGODENDROGLIOMA
     Route: 048
     Dates: start: 20090203, end: 20090203
  3. VINCRISTINE [Suspect]
     Indication: OLIGODENDROGLIOMA
     Route: 042
     Dates: start: 20090210, end: 20090210
  4. ZOPHREN [Suspect]
     Indication: PRODUCT USED FOR UNKNOWN INDICATION
     Route: 048
     Dates: start: 20090203, end: 20090209

REACTIONS (8)
  - Thrombocytopenia [None]
  - Hepatitis acute [None]
  - Renal failure [None]
  - Hepatic failure [None]
  - Altered state of consciousness [None]
  - Oxygen saturation decreased [None]
  - Diarrhoea [None]
  - Hypotension [None]
